FAERS Safety Report 8323317-7 (Version None)
Quarter: 2012Q2

REPORT INFORMATION
  Report Type: 
  Country: None (occurrence: None)
  Receive Date: 20120430
  Receipt Date: 20120425
  Transmission Date: 20120825
  Serious: No
  Sender: FDA-Public Use
  Company Number: US-PFIZER INC-2009208450

PATIENT
  Sex: Female
  Weight: 101 kg

DRUGS (3)
  1. CELEBREX [Suspect]
     Indication: ARTHRITIS
     Dosage: UNK
  2. DILTIAZEM [Concomitant]
     Indication: BLOOD PRESSURE ABNORMAL
     Dosage: 350 MG, DAILY
  3. LIPITOR [Suspect]
     Indication: BLOOD CHOLESTEROL ABNORMAL
     Dosage: 20 MG, DAILY
     Route: 048
     Dates: end: 20120301

REACTIONS (3)
  - ARTHRALGIA [None]
  - ARTHRITIS [None]
  - MUSCLE FATIGUE [None]
